FAERS Safety Report 22522461 (Version 2)
Quarter: 2024Q3

REPORT INFORMATION
  Report Type: Spontaneous
  Country: CN (occurrence: CN)
  Receive Date: 20230605
  Receipt Date: 20240823
  Transmission Date: 20241017
  Serious: Yes (Other)
  Sender: BLUEPRINT MEDICINES
  Company Number: CN-Blueprint Medicines Corporation-LT-CN-2023-000903

PATIENT

DRUGS (4)
  1. AYVAKIT [Suspect]
     Active Substance: AVAPRITINIB
     Indication: Gastrointestinal stromal tumour
     Route: 065
     Dates: start: 202201, end: 202309
  2. AYVAKIT [Suspect]
     Active Substance: AVAPRITINIB
     Route: 065
     Dates: start: 202201, end: 202309
  3. SUNITINIB [Suspect]
     Active Substance: SUNITINIB
     Indication: Gastrointestinal stromal tumour
     Route: 065
     Dates: start: 202201, end: 202309
  4. SUNITINIB [Suspect]
     Active Substance: SUNITINIB
     Route: 065
     Dates: start: 202201, end: 202309

REACTIONS (1)
  - Disease progression [Unknown]
